FAERS Safety Report 14656497 (Version 4)
Quarter: 2019Q1

REPORT INFORMATION
  Report Type: Spontaneous
  Country: AR (occurrence: AR)
  Receive Date: 20180319
  Receipt Date: 20190116
  Transmission Date: 20190417
  Serious: Yes (Hospitalization)
  Sender: FDA-Public Use
  Company Number: AR-PFIZER INC-2018113267

PATIENT
  Age: 8 Year
  Sex: Male

DRUGS (2)
  1. GENOTROPIN [Suspect]
     Active Substance: SOMATROPIN
     Indication: FOETAL GROWTH RESTRICTION
     Dosage: 1.5 TO 2 MG 6 X WEEK
     Dates: start: 20141018, end: 20180305
  2. GENOTROPIN [Suspect]
     Active Substance: SOMATROPIN
     Dosage: 1.6 TO 1.8 MG 7 X WEEK

REACTIONS (2)
  - Infection [Unknown]
  - Bladder dilatation [Recovering/Resolving]
